FAERS Safety Report 21735946 (Version 2)
Quarter: 2022Q4

REPORT INFORMATION
  Report Type: Spontaneous
  Country: US (occurrence: US)
  Receive Date: 20221215
  Receipt Date: 20221220
  Transmission Date: 20230112
  Serious: No
  Sender: FDA-Public Use
  Company Number: US-PFIZER INC-202201358995

PATIENT
  Age: 49 Year
  Sex: Female
  Weight: 90.72 kg

DRUGS (1)
  1. GENOTROPIN [Suspect]
     Active Substance: SOMATROPIN
     Dosage: UNK, 1X/DAY (1.2 ONCE A DAY INJECTION IN THE STOMACH)

REACTIONS (4)
  - COVID-19 [Unknown]
  - Fatigue [Unknown]
  - Somnolence [Unknown]
  - Cognitive disorder [Unknown]
